FAERS Safety Report 19577949 (Version 1)
Quarter: 2021Q3

REPORT INFORMATION
  Report Type: Report from Study
  Country: GB (occurrence: GB)
  Receive Date: 20210719
  Receipt Date: 20210719
  Transmission Date: 20211014
  Serious: Yes (Hospitalization)
  Sender: FDA-Public Use
  Company Number: GB-MYLANLABS-2021M1042794

PATIENT
  Age: 40 Year
  Sex: Female

DRUGS (3)
  1. CIPROFLOXACIN. [Suspect]
     Active Substance: CIPROFLOXACIN
     Indication: PRODUCT USED FOR UNKNOWN INDICATION
     Dosage: UNK
     Route: 065
  2. HEPARIN [Suspect]
     Active Substance: HEPARIN SODIUM
     Dosage: RECEIVED HEPARIN SOLUTION IN THE FORM OF A BOLUS DOSE ...
     Route: 041
  3. HEPARIN [Suspect]
     Active Substance: HEPARIN SODIUM
     Indication: ANTICOAGULANT THERAPY
     Dosage: RECEIVED HEPARIN SOLUTION IN THE FORM OF A BOLUS DOSE AT...
     Route: 040

REACTIONS (3)
  - Peripheral ischaemia [Unknown]
  - Thrombocytopenia [Unknown]
  - Deep vein thrombosis [Unknown]
